FAERS Safety Report 22648243 (Version 2)
Quarter: 2023Q4

REPORT INFORMATION
  Report Type: Report from Study
  Country: US (occurrence: US)
  Receive Date: 20230628
  Receipt Date: 20231023
  Transmission Date: 20240109
  Serious: No
  Sender: FDA-Public Use
  Company Number: US-ABBVIE-4321692

PATIENT
  Sex: Male

DRUGS (1)
  1. VENCLEXTA [Suspect]
     Active Substance: VENETOCLAX
     Indication: Chronic lymphocytic leukaemia
     Dosage: 4 TABLETS ONCE DAILY WITH FOOD AND A FULL GLASS OF WATER?FORM STRENGTH: 100 MILLIGRAM
     Route: 048

REACTIONS (2)
  - Dizziness [Unknown]
  - Fatigue [Not Recovered/Not Resolved]
